FAERS Safety Report 12950917 (Version 3)
Quarter: 2016Q4

REPORT INFORMATION
  Report Type: Spontaneous
  Country: JP (occurrence: JP)
  Receive Date: 20161116
  Receipt Date: 20161207
  Transmission Date: 20170207
  Serious: Yes (Other)
  Sender: FDA-Public Use
  Company Number: JP-ROCHE-1855443

PATIENT
  Age: 5 Decade
  Sex: Male

DRUGS (4)
  1. BASILIXIMAB [Concomitant]
     Active Substance: BASILIXIMAB
     Dosage: GENETICAL RECOMBINATION
     Route: 065
  2. CELLCEPT [Suspect]
     Active Substance: MYCOPHENOLATE MOFETIL\MYCOPHENOLATE MOFETIL HYDROCHLORIDE
     Indication: PRODUCT USED FOR UNKNOWN INDICATION
     Dosage: DOSAGE IS UNCERTAIN.
     Route: 048
  3. TACROLIMUS HYDRATE [Concomitant]
     Active Substance: TACROLIMUS
     Dosage: DOSAGE IS UNCERTAIN.
     Route: 065
  4. PREDNISOLONE. [Concomitant]
     Active Substance: PREDNISOLONE
     Dosage: DOSAGE IS UNCERTAIN.
     Route: 065

REACTIONS (4)
  - Cerebral infarction [Unknown]
  - Brain stem infarction [Unknown]
  - Pancreatitis acute [Unknown]
  - Gastrointestinal haemorrhage [Unknown]
